FAERS Safety Report 7040202-1 (Version None)
Quarter: 2010Q4

REPORT INFORMATION
  Report Type: 
  Country: None (occurrence: None)
  Receive Date: 20101012
  Receipt Date: 20101004
  Transmission Date: 20110411
  Serious: Yes (Hospitalization, Disabling)
  Sender: FDA-Public Use
  Company Number: CA-ABBOTT-10P-028-0675768-00

PATIENT
  Sex: Male
  Weight: 77.18 kg

DRUGS (1)
  1. LUPRON DEPOT [Suspect]
     Indication: PROSTATE CANCER
     Dates: start: 20100712

REACTIONS (5)
  - BRAIN NEOPLASM [None]
  - DIZZINESS [None]
  - MALAISE [None]
  - PARESIS [None]
  - PNEUMONIA [None]
